FAERS Safety Report 4523683-4 (Version None)
Quarter: 2004Q4

REPORT INFORMATION
  Report Type: 
  Country: None (occurrence: None)
  Receive Date: 20041210
  Receipt Date: 20030220
  Transmission Date: 20050328
  Serious: Yes (Hospitalization)
  Sender: FDA-Public Use
  Company Number: FR-GLAXOSMITHKLINE-B0293314A

PATIENT
  Age: 45 Year
  Sex: Female
  Weight: 63 kg

DRUGS (5)
  1. TRIZIVIR [Suspect]
     Indication: HIV INFECTION
     Dosage: 1TAB TWICE PER DAY
     Route: 048
     Dates: start: 20030110, end: 20030218
  2. DIFFU K [Suspect]
     Route: 048
     Dates: start: 20030104, end: 20030227
  3. MOPRAL [Suspect]
     Dosage: 20MG PER DAY
     Route: 048
     Dates: start: 20021205, end: 20030224
  4. STILNOX [Suspect]
     Dosage: 1TAB PER DAY
     Route: 048
     Dates: start: 20030104, end: 20030224
  5. FORLAX [Suspect]
     Dosage: 3SAC PER DAY
     Route: 048
     Dates: start: 20030103, end: 20030224

REACTIONS (5)
  - ANAEMIA [None]
  - COAGULATION FACTOR V LEVEL DECREASED [None]
  - HEPATOCELLULAR DAMAGE [None]
  - PROTHROMBIN LEVEL DECREASED [None]
  - PROTHROMBIN TIME SHORTENED [None]
